FAERS Safety Report 7427297-8 (Version None)
Quarter: 2011Q2

REPORT INFORMATION
  Report Type: 
  Country: None (occurrence: None)
  Receive Date: 20110420
  Receipt Date: 20110415
  Transmission Date: 20111010
  Serious: No
  Sender: FDA-Public Use
  Company Number: US-PFIZER INC-2011083643

PATIENT
  Sex: Female
  Weight: 31.746 kg

DRUGS (5)
  1. GENOTROPIN [Suspect]
     Indication: GROWTH HORMONE DEFICIENCY
     Dosage: UNK
     Dates: start: 20101001, end: 20101101
  2. MORPHINE [Concomitant]
     Indication: HEADACHE
     Dosage: UNK
  3. VERAPAMIL [Concomitant]
     Indication: HEADACHE
     Dosage: UNK
  4. GENOTROPIN [Suspect]
     Dosage: UNK
     Dates: start: 20110301, end: 20110101
  5. COMPAZINE [Concomitant]
     Indication: HEADACHE
     Dosage: UNK

REACTIONS (2)
  - MIGRAINE [None]
  - ABDOMINAL DISCOMFORT [None]
